FAERS Safety Report 4525329-8 (Version None)
Quarter: 2004Q4

REPORT INFORMATION
  Report Type: 
  Country: None (occurrence: None)
  Receive Date: 20041117
  Receipt Date: 20040428
  Transmission Date: 20050328
  Serious: Yes (Other)
  Sender: FDA-Public Use
  Company Number: 2004S1001251

PATIENT
  Age: 40 Year
  Sex: Female

DRUGS (1)
  1. CLOZAPINE [Suspect]
     Indication: HALLUCINATION, AUDITORY
     Dosage: 300-400MG QD, ORAL
     Route: 048
     Dates: start: 19940101

REACTIONS (2)
  - CONVULSION [None]
  - DRUG INEFFECTIVE [None]
